FAERS Safety Report 9503964 (Version 1)
Quarter: 2013Q3

REPORT INFORMATION
  Report Type: Spontaneous
  Country: JP (occurrence: JP)
  Receive Date: 20130906
  Receipt Date: 20130906
  Transmission Date: 20140515
  Serious: Yes (Other)
  Sender: FDA-Public Use
  Company Number: JP-ASTRAZENECA-2013SE66512

PATIENT
  Age: 75 Year
  Sex: Male

DRUGS (4)
  1. DIPRIVAN [Suspect]
     Indication: SEDATION
     Dosage: DOSE UNKNOWN
     Route: 042
  2. AMIODARONE HYDROCHLORIDE [Concomitant]
     Dosage: DOSE UNKNOWN
     Route: 065
  3. SOTALOL HYDROCHLORIDE [Concomitant]
     Dosage: DOSE UNKNOWN
     Route: 065
  4. CARDIOTONICS [Concomitant]
     Dosage: DOSE UNKNOWN
     Route: 065

REACTIONS (6)
  - Propofol infusion syndrome [Unknown]
  - Hepatic failure [Unknown]
  - Metabolic acidosis [Unknown]
  - Rhabdomyolysis [Recovering/Resolving]
  - Anuria [Unknown]
  - Gastrointestinal haemorrhage [Recovering/Resolving]
